FAERS Safety Report 6439417-2 (Version None)
Quarter: 2009Q4

REPORT INFORMATION
  Report Type: 
  Country: None (occurrence: None)
  Receive Date: 20091111
  Receipt Date: 20091111
  Transmission Date: 20100525
  Serious: Yes (Life-Threatening, Hospitalization, Other)
  Sender: FDA-Public Use
  Company Number: None

PATIENT
  Age: 72 Year
  Sex: Male
  Weight: 78.0187 kg

DRUGS (2)
  1. PACERONE [Suspect]
     Indication: ARRHYTHMIA
     Dates: start: 20070511, end: 20070515
  2. PACERONE [Suspect]
     Indication: ARRHYTHMIA
     Dates: start: 20070515, end: 20070515

REACTIONS (2)
  - ORGANISING PNEUMONIA [None]
  - PULMONARY FIBROSIS [None]
